FAERS Safety Report 21026046 (Version 1)
Quarter: 2022Q2

REPORT INFORMATION
  Report Type: Spontaneous
  Country: IL (occurrence: None)
  Receive Date: 20220630
  Receipt Date: 20220630
  Transmission Date: 20220721
  Serious: Yes (Hospitalization, Other)
  Sender: FDA-Public Use
  Company Number: IL-ROCHE-3119132

PATIENT
  Age: 45 Year
  Sex: Male

DRUGS (7)
  1. ZELBORAF [Suspect]
     Active Substance: VEMURAFENIB
     Indication: Anaplastic astrocytoma
     Route: 065
  2. DEXAMETHASONE [Concomitant]
     Active Substance: DEXAMETHASONE
     Route: 048
  3. MEKINIST [Concomitant]
     Active Substance: TRAMETINIB DIMETHYL SULFOXIDE
     Route: 048
  4. OMEPRAZOLE [Concomitant]
     Active Substance: OMEPRAZOLE
     Route: 048
  5. RIVOTRIL [Concomitant]
     Active Substance: CLONAZEPAM
     Dosage: 2.5MG/ML
  6. TAFINLAR [Concomitant]
     Active Substance: DABRAFENIB MESYLATE
     Route: 048
  7. VIMPAT [Concomitant]
     Active Substance: LACOSAMIDE
     Route: 048

REACTIONS (9)
  - Skin disorder [Unknown]
  - Magnetic resonance imaging abnormal [Unknown]
  - BRAF gene mutation [Unknown]
  - Seizure [Unknown]
  - Partial seizures [Unknown]
  - Condition aggravated [Unknown]
  - Brain oedema [Unknown]
  - Intracranial mass [Unknown]
  - Ill-defined disorder [Unknown]

NARRATIVE: CASE EVENT DATE: 20200801
